FAERS Safety Report 7338696-7 (Version None)
Quarter: 2011Q1

REPORT INFORMATION
  Report Type: 
  Country: None (occurrence: None)
  Receive Date: 20110308
  Receipt Date: 20110228
  Transmission Date: 20110831
  Serious: Yes (Disabling)
  Sender: FDA-Public Use
  Company Number: A0915857A

PATIENT
  Age: 67 Year
  Sex: Female

DRUGS (13)
  1. CRESTOR [Concomitant]
  2. ROBAXIN [Concomitant]
  3. ACIPHEX [Concomitant]
  4. SYMBICORT [Concomitant]
  5. PREDNISONE TAB [Concomitant]
  6. CELEXA [Concomitant]
  7. CORGARD [Concomitant]
  8. PERCOCET [Concomitant]
  9. WELLBUTRIN XL [Concomitant]
  10. LAMICTAL [Suspect]
     Indication: BIPOLAR DISORDER
     Dosage: 100MG TWICE PER DAY
     Route: 048
  11. NEURONTIN [Concomitant]
  12. PULMICORT [Concomitant]
  13. DIOVAN [Concomitant]

REACTIONS (4)
  - TENDERNESS [None]
  - PAIN [None]
  - RASH [None]
  - LATEX ALLERGY [None]
